FAERS Safety Report 6164388-6 (Version None)
Quarter: 2009Q2

REPORT INFORMATION
  Report Type: 
  Country: None (occurrence: None)
  Receive Date: 20090421
  Receipt Date: 20090407
  Transmission Date: 20091009
  Serious: Yes (Death, Hospitalization)
  Sender: FDA-Public Use
  Company Number: 2009001073

PATIENT
  Age: 57 Year
  Sex: Male

DRUGS (10)
  1. ERLOTINIB (ERLOTINIB) (TABLET) (ERLOTINIB) [Suspect]
     Indication: HEPATIC NEOPLASM MALIGNANT NON-RESECTABLE
     Dosage: QD, ORAL
     Route: 048
     Dates: start: 20090221, end: 20090401
  2. BEVACIZUMAB (INJECTION FOR INFUSION) [Suspect]
     Dosage: Q2W, INTRAVENOUS
     Route: 042
     Dates: start: 20090221
  3. DIOVAN [Concomitant]
  4. LOPRESSOR HCT (CO-BETALOC) [Concomitant]
  5. METOPROLOL TARTRATE [Concomitant]
  6. SYNTHROID [Concomitant]
  7. PRILOSEC [Concomitant]
  8. MVI (MULTIVITAMINS) [Concomitant]
  9. HYDROCODONE (HYDROCODONE) [Concomitant]
  10. MAGNESIUM OXIDE (MAGNESIUM OXIDE) [Concomitant]

REACTIONS (4)
  - CARDIO-RESPIRATORY ARREST [None]
  - MOUTH HAEMORRHAGE [None]
  - SEPTIC SHOCK [None]
  - THROMBOCYTOPENIA [None]
